FAERS Safety Report 9013277 (Version 2)
Quarter: 2013Q1

REPORT INFORMATION
  Report Type: Spontaneous
  Country: TW (occurrence: TW)
  Receive Date: 20130115
  Receipt Date: 20130129
  Transmission Date: 20140127
  Serious: Yes (Other)
  Sender: FDA-Public Use
  Company Number: TW-RANBAXY-2013RR-63943

PATIENT
  Age: 62 Year
  Sex: Female

DRUGS (9)
  1. FLUOXETINE [Suspect]
     Indication: DEPRESSION
     Dosage: 40 MG/DAY
     Route: 065
  2. FLUOXETINE [Interacting]
     Indication: DEPRESSION
     Dosage: 60 MG/DAY
     Route: 065
  3. ARIPIPRAZOLE [Interacting]
     Indication: DEPRESSION
     Dosage: 5 MG, QOD
     Route: 065
  4. ARIPIPRAZOLE [Interacting]
     Indication: DEPRESSION
     Dosage: 2.5 MG, QOD
     Route: 065
  5. ARIPIPRAZOLE [Concomitant]
     Indication: DEPRESSION
     Dosage: 1.875 MG, QOD
     Route: 065
  6. ARIPIPRAZOLE [Concomitant]
     Indication: SUICIDAL IDEATION
  7. PROPRANOLOL [Concomitant]
     Indication: HYPERTENSION
     Dosage: 30 MG/DAY
     Route: 065
  8. CLONAZEPAM [Concomitant]
     Indication: DEPRESSION
     Dosage: 2 MG/DAY
     Route: 065
  9. BUPROPION [Concomitant]
     Indication: DEPRESSION
     Dosage: 150 MG/DAY
     Route: 065

REACTIONS (2)
  - Hypomania [Recovered/Resolved]
  - Drug interaction [Unknown]
